FAERS Safety Report 18680827 (Version 1)
Quarter: 2020Q4

REPORT INFORMATION
  Report Type: Report from Study
  Country: US (occurrence: US)
  Receive Date: 20201229
  Receipt Date: 20201229
  Transmission Date: 20210114
  Serious: No
  Sender: FDA-Public Use
  Company Number: US-CLOVIS ONCOLOGY-CLO-2020-002105

PATIENT
  Age: 56 Year
  Sex: Male

DRUGS (1)
  1. RUBRACA [Suspect]
     Active Substance: RUCAPARIB CAMSYLATE
     Indication: PROSTATE CANCER
     Dosage: 600 MG, BID
     Route: 048
     Dates: start: 20201104

REACTIONS (9)
  - Decreased appetite [Recovering/Resolving]
  - Depression [Recovering/Resolving]
  - Accidental underdose [Unknown]
  - Pain [Unknown]
  - Anaemia [Unknown]
  - Vomiting [Unknown]
  - Anxiety [Unknown]
  - Fatigue [Recovering/Resolving]
  - Nausea [Not Recovered/Not Resolved]

NARRATIVE: CASE EVENT DATE: 202011
